FAERS Safety Report 11381616 (Version 1)
Quarter: 2015Q3

REPORT INFORMATION
  Report Type: Spontaneous
  Country: US (occurrence: US)
  Receive Date: 20150814
  Receipt Date: 20150814
  Transmission Date: 20151125
  Serious: No
  Sender: FDA-Public Use
  Company Number: US-ASTRAZENECA-2015SE75732

PATIENT
  Age: 16233 Day
  Sex: Female
  Weight: 97.5 kg

DRUGS (1)
  1. QUETIAPINE FUMARATE. [Suspect]
     Active Substance: QUETIAPINE FUMARATE
     Route: 048
     Dates: start: 20150328, end: 20150520

REACTIONS (3)
  - Rash erythematous [Unknown]
  - Accidental exposure to product [Unknown]
  - Alopecia [Unknown]

NARRATIVE: CASE EVENT DATE: 20150328
